FAERS Safety Report 12713397 (Version 3)
Quarter: 2024Q4

REPORT INFORMATION
  Report Type: Report from Study
  Country: JP (occurrence: JP)
  Receive Date: 20160903
  Receipt Date: 20241101
  Transmission Date: 20250115
  Serious: Yes (Death, Hospitalization, Other)
  Sender: AMGEN
  Company Number: JP-KYOWAKIRIN-2016JPN-NSP000674AA

PATIENT
  Age: 67 Year
  Sex: Female
  Weight: 35 kg

DRUGS (3)
  1. DARBEPOETIN ALFA [Suspect]
     Active Substance: DARBEPOETIN ALFA
     Indication: Myelodysplastic syndrome
     Dosage: 240 MUG, UNK
     Route: 058
     Dates: start: 20150423, end: 20150423
  2. DARBEPOETIN ALFA [Suspect]
     Active Substance: DARBEPOETIN ALFA
     Dosage: 240 MUG, 1X/2WEEKS
     Route: 058
     Dates: start: 20150511, end: 20150525
  3. DARBEPOETIN ALFA [Suspect]
     Active Substance: DARBEPOETIN ALFA
     Dosage: 240 MUG, 1X/WEEK
     Route: 058
     Dates: start: 20150601, end: 20150608

REACTIONS (2)
  - Transformation to acute myeloid leukaemia [Fatal]
  - Pneumonia [Not Recovered/Not Resolved]

NARRATIVE: CASE EVENT DATE: 20150619
